FAERS Safety Report 5525333-7 (Version None)
Quarter: 2007Q4

REPORT INFORMATION
  Report Type: 
  Country: None (occurrence: None)
  Receive Date: 20071120
  Receipt Date: 20071120
  Transmission Date: 20080405
  Serious: Yes (Hospitalization)
  Sender: FDA-Public Use
  Company Number: None

PATIENT
  Sex: Female
  Weight: 94.3 kg

DRUGS (3)
  1. CYTARABINE [Suspect]
     Dosage: 3070 MG
  2. DAUNORUBICIN [Suspect]
     Dosage: 300 MG
  3. ETOPOSIDE [Suspect]
     Dosage: 1000 MG

REACTIONS (1)
  - STATUS EPILEPTICUS [None]
